FAERS Safety Report 4765149-2 (Version None)
Quarter: 2005Q3

REPORT INFORMATION
  Report Type: 
  Country: None (occurrence: None)
  Receive Date: 20050909
  Receipt Date: 20050524
  Transmission Date: 20060218
  Serious: Yes (Hospitalization)
  Sender: FDA-Public Use
  Company Number: US-ABBOTT-05P-163-0301276-00

PATIENT
  Sex: Female
  Weight: 77.634 kg

DRUGS (5)
  1. HUMIRA [Suspect]
     Indication: RHEUMATOID ARTHRITIS
     Route: 058
     Dates: start: 20030101, end: 20050401
  2. HUMIRA [Suspect]
     Route: 058
     Dates: start: 20050501, end: 20050501
  3. PREDNISONE TAB [Concomitant]
     Indication: RHEUMATOID ARTHRITIS
     Route: 048
  4. PHENOBARBITAL TAB [Concomitant]
     Indication: CONVULSION
     Route: 048
     Dates: start: 19990101
  5. PROPACET 100 [Concomitant]
     Indication: PAIN
     Route: 048

REACTIONS (3)
  - CONVULSION [None]
  - CYSTITIS [None]
  - RHEUMATOID ARTHRITIS [None]
